FAERS Safety Report 19655381 (Version 1)
Quarter: 2021Q3

REPORT INFORMATION
  Report Type: Spontaneous
  Country: US (occurrence: US)
  Receive Date: 20210803
  Receipt Date: 20210803
  Transmission Date: 20211014
  Serious: No
  Sender: FDA-Public Use
  Company Number: None

PATIENT
  Age: 63 Year
  Sex: Female
  Weight: 57.61 kg

DRUGS (1)
  1. BUDESONIDE 3MG [Suspect]
     Active Substance: BUDESONIDE
     Route: 048
     Dates: start: 20120523, end: 20130524

REACTIONS (4)
  - Pruritus [None]
  - Alopecia [None]
  - Diarrhoea [None]
  - Loss of therapeutic response [None]

NARRATIVE: CASE EVENT DATE: 20131025
